FAERS Safety Report 10269572 (Version 1)
Quarter: 2014Q2

REPORT INFORMATION
  Report Type: Spontaneous
  Country: US (occurrence: None)
  Receive Date: 20140625
  Receipt Date: 20140625
  Transmission Date: 20141212
  Serious: Yes (Hospitalization)
  Sender: FDA-Public Use
  Company Number: UNT-2014-002481

PATIENT
  Age: 64 Year
  Sex: Female
  Weight: 44 kg

DRUGS (3)
  1. REMODULIN [Suspect]
     Indication: COR PULMONALE CHRONIC
     Dosage: CONTINUING
     Route: 041
     Dates: start: 20140409
  2. TRACLEER (BOSENTAN) [Suspect]
  3. PRADAXA (DABIGATRAN ETEXILATE MESILATE) [Concomitant]

REACTIONS (1)
  - Cardiac failure congestive [None]
